FAERS Safety Report 19490283 (Version 1)
Quarter: 2021Q3

REPORT INFORMATION
  Report Type: Spontaneous
  Country: DE (occurrence: DE)
  Receive Date: 20210705
  Receipt Date: 20210705
  Transmission Date: 20211014
  Serious: Yes (Hospitalization)
  Sender: FDA-Public Use
  Company Number: DE-TEVA-2021-DE-1928352

PATIENT
  Age: 90 Year
  Sex: Male
  Weight: 86 kg

DRUGS (9)
  1. TORASEMID [Concomitant]
     Active Substance: TORSEMIDE
     Dosage: 10 MILLIGRAM DAILY;  1?0?0?0,
     Route: 048
  2. PANTOPRAZOL [Concomitant]
     Active Substance: PANTOPRAZOLE SODIUM
     Dosage: 40 MILLIGRAM DAILY;   1?0?0?0,
     Route: 048
  3. SYMBICORT [Concomitant]
     Active Substance: BUDESONIDE\FORMOTEROL FUMARATE DIHYDRATE
     Dosage: 2 DOSAGE FORMS DAILY; ?1?0?1?0, METERED DOSE INHALER
     Route: 055
  4. VERAPAMIL [Concomitant]
     Active Substance: VERAPAMIL HYDROCHLORIDE
     Dosage: 120 MILLIGRAM DAILY;  1?0?0?0,
     Route: 048
  5. BRIMICA GENUAIR 340MIKROGRAMM/12MIKROGRAMM [Concomitant]
     Dosage: 2 DOSAGE FORMS DAILY; ?1?0?1?0, METERED DOSE INHALER
     Route: 055
  6. PRADAXA [Concomitant]
     Active Substance: DABIGATRAN ETEXILATE MESYLATE
     Dosage: 220 MILLIGRAM DAILY;   1?0?1?0,
     Route: 048
  7. VINORELBINE [Suspect]
     Active Substance: VINORELBINE TARTRATE
     Dosage: ACCORDING TO THE SCHEME,
     Route: 042
  8. ALLOPURINOL. [Concomitant]
     Active Substance: ALLOPURINOL
     Dosage: 100 MILLIGRAM DAILY;  1?0?0?0,
     Route: 048
  9. GEMCITABINE. [Suspect]
     Active Substance: GEMCITABINE
     Dosage: ACCORDING TO THE SCHEME,
     Route: 042

REACTIONS (4)
  - Cough [Recovering/Resolving]
  - Weight decreased [Recovering/Resolving]
  - Sputum discoloured [Recovering/Resolving]
  - Dyspnoea [Recovering/Resolving]
